FAERS Safety Report 12439691 (Version 1)
Quarter: 2016Q2

REPORT INFORMATION
  Report Type: Spontaneous
  Country: FR (occurrence: FR)
  Receive Date: 20160606
  Receipt Date: 20160606
  Transmission Date: 20160815
  Serious: Yes (Other)
  Sender: FDA-Public Use
  Company Number: FR-TEVA-663576ISR

PATIENT
  Age: 51 Year
  Sex: Male

DRUGS (8)
  1. ETOPOSIDE TEVA [Suspect]
     Active Substance: ETOPOSIDE
     Indication: DIFFUSE LARGE B-CELL LYMPHOMA RECURRENT
     Dosage: 181 MILLIGRAM DAILY; DAY 1 OF R-ICE PROTOCOL (RITUXIMAB, IFOSFAMIDE, CARBOPLATINE, ETOPOSIDE)
     Route: 042
     Dates: start: 20151019, end: 20151019
  2. ETOPOSIDE TEVA [Suspect]
     Active Substance: ETOPOSIDE
     Dosage: 182 MILLIGRAM DAILY; DAY 2 OF R-ICE PROTOCOL
     Route: 041
     Dates: start: 20151020, end: 20151020
  3. ETOPOSIDE TEVA [Suspect]
     Active Substance: ETOPOSIDE
     Dosage: R-ICE PROTOCOL
     Route: 041
     Dates: start: 20151021, end: 20151021
  4. IFOSFAMIDE EG [Suspect]
     Active Substance: IFOSFAMIDE
     Indication: DIFFUSE LARGE B-CELL LYMPHOMA RECURRENT
     Dosage: DAY 2 OF R-ICE PROTOCOL
     Route: 041
     Dates: start: 20151020, end: 20151020
  5. RITUXIMAB [Concomitant]
     Active Substance: RITUXIMAB
     Indication: DIFFUSE LARGE B-CELL LYMPHOMA RECURRENT
     Dosage: 8 COURSES OF R-CHOP PROTOCOL (RITUXIMAB, CYCLOPHOSPHAMIDE, DOXORUBICIN, VINCRISTIN, PREDNISONE)
  6. RITUXIMAB [Concomitant]
     Active Substance: RITUXIMAB
     Dosage: 3 COURSES OF R-DHAP PROTOCOL (RITUXIMAB, DEXAMETHASONE, CYTARABINE AND CISPLATIN)
  7. CARBOPLATINE HOSPIRA [Suspect]
     Active Substance: CARBOPLATIN
     Indication: DIFFUSE LARGE B-CELL LYMPHOMA RECURRENT
     Dosage: DAY 2 OF R-ICE PROTOCOL
     Route: 041
     Dates: start: 20151020, end: 20151020
  8. RITUXIMAB [Concomitant]
     Active Substance: RITUXIMAB
     Dosage: 679 MILLIGRAM DAILY; DAY 1 OF R-ICE PROTOCOL
     Dates: start: 20151019, end: 20151019

REACTIONS (2)
  - Confusional state [Recovered/Resolved]
  - Agitation [Recovered/Resolved]

NARRATIVE: CASE EVENT DATE: 20151020
